FAERS Safety Report 7296247-X (Version None)
Quarter: 2011Q1

REPORT INFORMATION
  Report Type: 
  Country: None (occurrence: None)
  Receive Date: 20110216
  Receipt Date: 20110123
  Transmission Date: 20110831
  Serious: No
  Sender: FDA-Public Use
  Company Number: US-B.I. PHARMACEUTICALS,INC./RIDGEFIELD-2011-BP-02293BP

PATIENT
  Sex: Female

DRUGS (3)
  1. TRENTAL [Concomitant]
     Indication: CIRCULATORY COLLAPSE
  2. PRADAXA [Suspect]
     Indication: ATRIAL FIBRILLATION
     Dosage: 300 MG
     Route: 048
     Dates: start: 20110107
  3. TAMOXAPHEN [Concomitant]
     Indication: BREAST CANCER

REACTIONS (2)
  - HEADACHE [None]
  - EAR PAIN [None]
